FAERS Safety Report 23944096 (Version 3)
Quarter: 2024Q3

REPORT INFORMATION
  Report Type: Spontaneous
  Country: DE (occurrence: DE)
  Receive Date: 20240606
  Receipt Date: 20240703
  Transmission Date: 20241016
  Serious: Yes (Death, Other)
  Sender: NOVARTIS
  Company Number: DE-002147023-NVSC2024DE118220

PATIENT
  Age: 68 Year
  Sex: Male

DRUGS (1)
  1. PLUVICTO [Suspect]
     Active Substance: LUTETIUM LU-177 VIPIVOTIDE TETRAXETAN
     Indication: Hormone-refractory prostate cancer
     Dosage: 7400 MBQ
     Route: 065
     Dates: start: 20240424, end: 20240424

REACTIONS (3)
  - Death [Fatal]
  - Hormone-refractory prostate cancer [Unknown]
  - Malignant neoplasm progression [Unknown]

NARRATIVE: CASE EVENT DATE: 20240508
